FAERS Safety Report 24672929 (Version 2)
Quarter: 2025Q1

REPORT INFORMATION
  Report Type: Spontaneous
  Country: IE (occurrence: IE)
  Receive Date: 20241128
  Receipt Date: 20250207
  Transmission Date: 20250409
  Serious: Yes (Hospitalization)
  Sender: ROCHE
  Company Number: None

PATIENT
  Age: 56 Year
  Sex: Female
  Weight: 120 kg

DRUGS (26)
  1. TRASTUZUMAB [Suspect]
     Active Substance: TRASTUZUMAB
     Indication: Colon cancer
     Route: 050
     Dates: start: 20240705, end: 20240726
  2. TRASTUZUMAB [Suspect]
     Active Substance: TRASTUZUMAB
     Route: 040
     Dates: start: 20240726, end: 20240901
  3. TRASTUZUMAB [Suspect]
     Active Substance: TRASTUZUMAB
     Route: 040
     Dates: start: 20240902, end: 20240916
  4. TRASTUZUMAB [Suspect]
     Active Substance: TRASTUZUMAB
     Route: 040
     Dates: start: 20240705, end: 20240726
  5. TRASTUZUMAB [Suspect]
     Active Substance: TRASTUZUMAB
     Route: 040
     Dates: start: 20240705, end: 20240725
  6. OXALIPLATIN [Suspect]
     Active Substance: OXALIPLATIN
     Indication: Colon cancer
     Route: 040
     Dates: start: 20240705, end: 20240802
  7. OXALIPLATIN [Suspect]
     Active Substance: OXALIPLATIN
     Route: 050
     Dates: start: 20240902, end: 20240916
  8. OXALIPLATIN [Suspect]
     Active Substance: OXALIPLATIN
     Route: 065
     Dates: start: 20240707, end: 20240802
  9. LOPERAMIDE HYDROCHLORIDE [Suspect]
     Active Substance: LOPERAMIDE HYDROCHLORIDE
     Indication: Prophylaxis against diarrhoea
     Dosage: FOUR TIME A DAY THERAPY INFORMATION: #1 DOSAGE TEXT: 2-4 MG, 4X/ DAY #1 PHARMA. DOSE FORM/PARENT/ROU
     Route: 048
     Dates: start: 20240705
  10. FLUOROURACIL [Suspect]
     Active Substance: FLUOROURACIL
     Indication: Colon cancer
     Dosage: 400 MG/M2, QOW FREQUENCY: 1 FREQUENCY TIME: 2 FREQUENCY TIME UNIT: WEEKS
     Route: 040
     Dates: start: 20240705, end: 20240802
  11. FLUOROURACIL [Suspect]
     Active Substance: FLUOROURACIL
     Dosage: 4200 MILLIGRAM/SQ. METER EVERY 2 WEEKS ON DAYS
     Route: 040
     Dates: start: 20240705, end: 20240802
  12. FLUOROURACIL [Suspect]
     Active Substance: FLUOROURACIL
     Dosage: 2400 MG/M2, QOW FREQUENCY: 1 FREQUENCY TIME: 2 FREQUENCY TIME UNIT: WEEKS
     Route: 040
     Dates: start: 20240705, end: 20240802
  13. FLUOROURACIL [Suspect]
     Active Substance: FLUOROURACIL
     Dosage: 738 MG/M2, QOW FREQUENCY: 1 FREQUENCY TIME: 2 FREQUENCY TIME UNIT: WEEKS
     Route: 040
     Dates: start: 20240902, end: 20240916
  14. FLUOROURACIL [Suspect]
     Active Substance: FLUOROURACIL
     Dosage: 738 MG/M2, QOW FREQUENCY: 1 FREQUENCY TIME: 2 FREQUENCY TIME UNIT: WEEKS
     Route: 040
     Dates: start: 20240902, end: 20240916
  15. TUCATINIB [Suspect]
     Active Substance: TUCATINIB
     Indication: Colon cancer
     Dosage: 250 MG BID FREQUENCY: 1 FREQUENCY TIME: 12 FREQUENCY TIME UNIT: HOURS
     Route: 048
     Dates: start: 20240705, end: 20240813
  16. TUCATINIB [Suspect]
     Active Substance: TUCATINIB
     Dosage: 300 MG BID FREQUENCY: 1 FREQUENCY TIME: 12 FREQUENCY TIME UNIT: HOURS
     Route: 048
     Dates: start: 20240705, end: 20240818
  17. TUCATINIB [Suspect]
     Active Substance: TUCATINIB
     Dosage: 200 MG BID FREQUENCY: 1 FREQUENCY TIME: 12 FREQUENCY TIME UNIT: HOURS
     Route: 048
     Dates: start: 20240902, end: 20240916
  18. TUCATINIB [Suspect]
     Active Substance: TUCATINIB
     Dosage: 200 MG BID FREQUENCY: 1 FREQUENCY TIME: 12 FREQUENCY TIME UNIT: HOURS
     Route: 048
     Dates: start: 20240726, end: 20240818
  19. LEUCOVORIN CALCIUM [Suspect]
     Active Substance: LEUCOVORIN CALCIUM
     Indication: Colon cancer
     Route: 040
     Dates: start: 20240705, end: 20240802
  20. LEUCOVORIN CALCIUM [Suspect]
     Active Substance: LEUCOVORIN CALCIUM
     Route: 040
     Dates: start: 20240902, end: 20240916
  21. METFORMIN HYDROCHLORIDE [Concomitant]
     Active Substance: METFORMIN HYDROCHLORIDE
     Indication: Restless legs syndrome
     Route: 065
     Dates: start: 20210713, end: 20240813
  22. METFORMIN HYDROCHLORIDE [Concomitant]
     Active Substance: METFORMIN HYDROCHLORIDE
     Indication: Type 2 diabetes mellitus
     Route: 065
     Dates: start: 20240923, end: 20240925
  23. METFORMIN HYDROCHLORIDE [Concomitant]
     Active Substance: METFORMIN HYDROCHLORIDE
     Route: 065
     Dates: start: 20210713, end: 20240925
  24. ESCITALOPRAM OXALATE [Concomitant]
     Active Substance: ESCITALOPRAM OXALATE
     Indication: Depression
     Route: 065
     Dates: start: 2018, end: 20240814
  25. ESCITALOPRAM OXALATE [Concomitant]
     Active Substance: ESCITALOPRAM OXALATE
     Route: 050
     Dates: start: 2018, end: 20241125
  26. LOSARTAN [Concomitant]
     Active Substance: LOSARTAN
     Indication: Product used for unknown indication
     Route: 048
     Dates: start: 2014, end: 20240814

REACTIONS (8)
  - Acute kidney injury [Recovered/Resolved with Sequelae]
  - Gastrointestinal stoma output increased [Recovered/Resolved with Sequelae]
  - Blood creatinine increased [Unknown]
  - Diarrhoea [Unknown]
  - Oliguria [Unknown]
  - Dehydration [Recovering/Resolving]
  - Hyponatraemia [Recovering/Resolving]
  - Blood sodium decreased [Recovered/Resolved with Sequelae]

NARRATIVE: CASE EVENT DATE: 20240813
